FAERS Safety Report 23314136 (Version 1)
Quarter: 2023Q4

REPORT INFORMATION
  Report Type: Spontaneous
  Country: IT (occurrence: IT)
  Receive Date: 20231219
  Receipt Date: 20231219
  Transmission Date: 20240110
  Serious: Yes (Hospitalization)
  Sender: FDA-Public Use
  Company Number: IT-TEVA-VS-3136322

PATIENT
  Age: 60 Year

DRUGS (2)
  1. CIPROFLOXACIN [Suspect]
     Active Substance: CIPROFLOXACIN
     Indication: Pseudomonas infection
     Route: 065
  2. 2^,4^,5^,7^- TETRABROMOFLUORESCEIN [Suspect]
     Active Substance: 2^,4^,5^,7^- TETRABROMOFLUORESCEIN
     Indication: Pseudomonas infection
     Dosage: LOCAL THERAPY
     Route: 065

REACTIONS (2)
  - Pseudomonas infection [Recovered/Resolved]
  - Therapy non-responder [Unknown]
